FAERS Safety Report 4643821-2 (Version None)
Quarter: 2005Q2

REPORT INFORMATION
  Report Type: 
  Country: None (occurrence: None)
  Receive Date: 20050425
  Receipt Date: 20041122
  Transmission Date: 20051028
  Serious: Yes (Other)
  Sender: FDA-Public Use
  Company Number: FR-MERCK-0411FRA00094

PATIENT
  Age: 48 Year
  Sex: Male

DRUGS (2)
  1. COZAAR [Suspect]
     Indication: HYPERTENSION
     Route: 048
     Dates: start: 20040101, end: 20041001
  2. COZAAR [Suspect]
     Route: 048
     Dates: start: 20041001, end: 20041114

REACTIONS (1)
  - ARRHYTHMIA [None]
